FAERS Safety Report 17427154 (Version 1)
Quarter: 2020Q1

REPORT INFORMATION
  Report Type: Report from Study
  Country: FR (occurrence: FR)
  Receive Date: 20200217
  Receipt Date: 20200217
  Transmission Date: 20200409
  Serious: Yes (Hospitalization, Other)
  Sender: FDA-Public Use
  Company Number: FR-ROCHE-2546979

PATIENT
  Age: 69 Year
  Sex: Female

DRUGS (4)
  1. GANCICLOVIR. [Suspect]
     Active Substance: GANCICLOVIR
     Indication: CYTOMEGALOVIRUS VIRAEMIA
     Route: 042
     Dates: start: 20191120
  2. FOSCAVIR [Suspect]
     Active Substance: FOSCARNET SODIUM
     Indication: CYTOMEGALOVIRUS VIRAEMIA
     Route: 065
     Dates: start: 20191128, end: 20191224
  3. VALGANCICLOVIR. [Suspect]
     Active Substance: VALGANCICLOVIR
     Indication: CYTOMEGALOVIRUS VIRAEMIA
     Route: 065
     Dates: start: 2019, end: 20191120
  4. CICLOSPORIN [Concomitant]
     Active Substance: CYCLOSPORINE

REACTIONS (4)
  - Respiratory failure [Unknown]
  - Hypotension [Unknown]
  - Interstitial lung disease [Recovering/Resolving]
  - Acute kidney injury [Unknown]

NARRATIVE: CASE EVENT DATE: 201912
